FAERS Safety Report 6003538-9 (Version None)
Quarter: 2008Q4

REPORT INFORMATION
  Report Type: 
  Country: None (occurrence: None)
  Receive Date: 20081212
  Receipt Date: 20081212
  Transmission Date: 20090506
  Serious: Yes (Hospitalization)
  Sender: FDA-Public Use
  Company Number: None

PATIENT
  Age: 58 Year
  Sex: Male
  Weight: 77.1115 kg

DRUGS (1)
  1. SUPER COLON CLEANSE NONE LISTED WWW.HEALTHPLUS.COM [Suspect]
     Indication: WEIGHT DECREASED
     Dosage: 4 CAPSULES 3 TIMES DAILY PO
     Route: 048
     Dates: start: 20081118, end: 20081202

REACTIONS (2)
  - HAEMATOCRIT DECREASED [None]
  - HAEMORRHAGE [None]
